FAERS Safety Report 9980861 (Version 2)
Quarter: 2014Q3

REPORT INFORMATION
  Report Type: Report from Study
  Country: ES (occurrence: ES)
  Receive Date: 20140307
  Receipt Date: 20140929
  Transmission Date: 20150326
  Serious: Yes (Hospitalization, Other)
  Sender: FDA-Public Use
  Company Number: ES-ROCHE-1360833

PATIENT
  Age: 74 Year
  Sex: Male
  Weight: 82 kg

DRUGS (6)
  1. BENESTAN (SPAIN) [Concomitant]
     Route: 065
     Dates: start: 1999
  2. RANIBIZUMAB [Suspect]
     Active Substance: RANIBIZUMAB
     Route: 050
     Dates: start: 20140121
  3. LOVASTATINA [Concomitant]
     Route: 065
     Dates: start: 2003
  4. RANIBIZUMAB [Suspect]
     Active Substance: RANIBIZUMAB
     Indication: AGE-RELATED MACULAR DEGENERATION
     Route: 050
     Dates: start: 20130715
  5. KALPRESS [Concomitant]
     Active Substance: VALSARTAN
     Route: 065
     Dates: start: 2003
  6. ALLOPURINOL. [Concomitant]
     Active Substance: ALLOPURINOL
     Route: 065
     Dates: start: 2003

REACTIONS (2)
  - Haematuria [Recovered/Resolved]
  - Benign neoplasm of prostate [Unknown]

NARRATIVE: CASE EVENT DATE: 20140218
